FAERS Safety Report 5739748-5 (Version None)
Quarter: 2008Q2

REPORT INFORMATION
  Report Type: 
  Country: None (occurrence: None)
  Receive Date: 20080512
  Receipt Date: 20080512
  Transmission Date: 20081010
  Serious: Yes (Other)
  Sender: FDA-Public Use
  Company Number: None

PATIENT
  Age: 54 Year
  Sex: Male
  Weight: 90.7194 kg

DRUGS (1)
  1. PLAVIX [Suspect]
     Indication: DRUG IMPLANTATION
     Dosage: ONE 1 TIME A DAY PO
     Route: 048
     Dates: start: 20080405, end: 20080510

REACTIONS (11)
  - ABDOMINAL PAIN UPPER [None]
  - ARTHROPATHY [None]
  - CONFUSIONAL STATE [None]
  - CONSTIPATION [None]
  - DEPRESSION [None]
  - DIARRHOEA [None]
  - DYSARTHRIA [None]
  - HEADACHE [None]
  - MEMORY IMPAIRMENT [None]
  - MYALGIA [None]
  - VISION BLURRED [None]
